FAERS Safety Report 7656880-X (Version None)
Quarter: 2011Q3

REPORT INFORMATION
  Report Type: 
  Country: None (occurrence: None)
  Receive Date: 20110804
  Receipt Date: 20110803
  Transmission Date: 20111222
  Serious: Yes (Other)
  Sender: FDA-Public Use
  Company Number: RO-PFIZER INC-2010121372

PATIENT
  Age: 54 Year
  Sex: Male
  Weight: 87 kg

DRUGS (3)
  1. ACTRAPID [Suspect]
     Indication: DIABETES MELLITUS
     Dosage: 22 IU, 2X/DAY
     Route: 058
     Dates: start: 19940101
  2. PREGABALIN [Suspect]
     Indication: PARTIAL SEIZURES
     Dosage: 100 MG, 3X/DAY
     Route: 048
     Dates: start: 20100115, end: 20100728
  3. MIXTARD HUMAN 70/30 [Suspect]
     Indication: DIABETES MELLITUS
     Dosage: 14 IU, 1X/DAY
     Route: 058
     Dates: start: 19940101

REACTIONS (2)
  - HYPOGLYCAEMIA [None]
  - WITHDRAWAL SYNDROME [None]
